FAERS Safety Report 19242830 (Version 1)
Quarter: 2021Q2

REPORT INFORMATION
  Report Type: Spontaneous
  Country: IR (occurrence: IR)
  Receive Date: 20210511
  Receipt Date: 20210511
  Transmission Date: 20210717
  Serious: Yes (Other)
  Sender: FDA-Public Use
  Company Number: IR-MYLANLABS-2021M1027692

PATIENT
  Age: 8 Year
  Sex: Female

DRUGS (7)
  1. METHOTREXATE. [Suspect]
     Active Substance: METHOTREXATE
     Indication: B PRECURSOR TYPE ACUTE LEUKAEMIA
     Dosage: 12.5 MILLIGRAM, BERLIN?FRANKFURT?MUNSTER PROTOCOL CHEMOTHERAPY
     Route: 065
  2. L?ASPARAGINASE [Suspect]
     Active Substance: ASPARAGINASE
     Indication: B PRECURSOR TYPE ACUTE LEUKAEMIA
     Dosage: 9 DOSAGE FORM, 6000 UNITS/M2/DAY, THRICE WEEKLY FOR 9 DOSES; BERLIN?FRANKFURT?MUNSTER..
     Route: 030
  3. HYDROCORTISONE. [Suspect]
     Active Substance: HYDROCORTISONE
     Indication: B PRECURSOR TYPE ACUTE LEUKAEMIA
     Dosage: 12.5 MILLIGRAM, BERLIN?FRANKFURT?MUNSTER PROTOCOL CHEMOTHERAPY
     Route: 065
  4. VINCRISTINE [Suspect]
     Active Substance: VINCRISTINE
     Indication: B PRECURSOR TYPE ACUTE LEUKAEMIA
     Dosage: 1.5 MILLIGRAM/SQ. METER, QD, BERLIN?FRANKFURT?MUNSTER PROTOCOL CHEMOTHERAPY
     Route: 042
  5. DAUNOMYCIN                         /00128201/ [Suspect]
     Active Substance: DAUNORUBICIN
     Indication: B PRECURSOR TYPE ACUTE LEUKAEMIA
     Dosage: 25 MILLIGRAM/SQ. METER, QD, BERLIN?FRANKFURT?MUNSTER PROTOCOL CHEMOTHERAPY
     Route: 042
  6. METHYLPREDNISOLONE. [Suspect]
     Active Substance: METHYLPREDNISOLONE
     Indication: B PRECURSOR TYPE ACUTE LEUKAEMIA
     Dosage: 60 MILLIGRAM/SQ. METER, QD, BERLIN?FRANKFURT?MUNSTER PROTOCOL CHEMOTHERAPY
     Route: 065
  7. ARA CELL [Suspect]
     Active Substance: CYTARABINE
     Indication: B PRECURSOR TYPE ACUTE LEUKAEMIA
     Dosage: 30 MILLIGRAM, BERLIN?FRANKFURT?MUNSTER PROTOCOL CHEMOTHERAPY
     Route: 037

REACTIONS (2)
  - Idiosyncratic drug reaction [Recovered/Resolved]
  - Bone marrow disorder [Recovered/Resolved]
